FAERS Safety Report 9491419 (Version 3)
Quarter: 2014Q1

REPORT INFORMATION
  Report Type: Spontaneous
  Country: US (occurrence: US)
  Receive Date: 20130830
  Receipt Date: 20140129
  Transmission Date: 20141002
  Serious: Yes (Other)
  Sender: FDA-Public Use
  Company Number: US-PFIZER INC-2013247140

PATIENT
  Age: 67 Year
  Sex: Male

DRUGS (2)
  1. INLYTA [Suspect]
     Indication: RENAL CANCER METASTATIC
     Dosage: 1 MG, UNK
     Dates: start: 20130723
  2. INLYTA [Suspect]
     Dosage: 4 MG, 2X/DAY (1 MG 4 TABS BID)
     Dates: start: 20131003

REACTIONS (11)
  - Rectal haemorrhage [Unknown]
  - Coeliac disease [Unknown]
  - Haemorrhoids [Unknown]
  - Constipation [Unknown]
  - Gastrointestinal inflammation [Unknown]
  - Irritable bowel syndrome [Unknown]
  - Nausea [Unknown]
  - Vomiting [Unknown]
  - Diarrhoea [Unknown]
  - Vision blurred [Unknown]
  - Tinnitus [Unknown]
